FAERS Safety Report 24181514 (Version 3)
Quarter: 2024Q3

REPORT INFORMATION
  Report Type: Spontaneous
  Country: US (occurrence: US)
  Receive Date: 20240807
  Receipt Date: 20240930
  Transmission Date: 20241017
  Serious: Yes (Other)
  Sender: BRISTOL MYERS SQUIBB
  Company Number: US-BRISTOL-MYERS SQUIBB COMPANY-2024-123919

PATIENT
  Age: 82 Year
  Sex: Female

DRUGS (3)
  1. LENALIDOMIDE [Suspect]
     Active Substance: LENALIDOMIDE
     Indication: Plasma cell myeloma in remission
     Dosage: TAKE 1 CAPSULE WHOLE BY MOUTH WITH WATER EVERY DAY FOR 21 DAYS ON THEN 14 DAYS OFF. DO NOT BREAK, CH
     Route: 048
  2. LENALIDOMIDE [Suspect]
     Active Substance: LENALIDOMIDE
     Dosage: TAKE 1 CAPSULE (5 MG) BY MOUTH DAILY FOR 14 DAYS ON, 14 DAYS OFF. TAKE WHOLE WITH WATER. DO NOT BREA
     Route: 048
  3. LENALIDOMIDE [Suspect]
     Active Substance: LENALIDOMIDE
     Dosage: TAKE 1 CAPSULE (5 MG) BY MOUTH DAILY FOR 14 DAYS ON, 14 DAYS OFF. TAKE WHOLE WITH WATER. DO NOT BREA
     Route: 048

REACTIONS (4)
  - Dementia Alzheimer^s type [Not Recovered/Not Resolved]
  - Off label use [Unknown]
  - Dementia [Not Recovered/Not Resolved]
  - Renal impairment [Not Recovered/Not Resolved]
